FAERS Safety Report 8360780-X (Version None)
Quarter: 2012Q2

REPORT INFORMATION
  Report Type: 
  Country: None (occurrence: None)
  Receive Date: 20120515
  Receipt Date: 20120510
  Transmission Date: 20120825
  Serious: Yes (Hospitalization)
  Sender: FDA-Public Use
  Company Number: FR-PFIZER INC-2012113830

PATIENT
  Age: 89 Year
  Sex: Female
  Weight: 57 kg

DRUGS (14)
  1. XANAX [Concomitant]
     Dosage: 9 DF, SINGLE
     Dates: start: 20120414, end: 20120415
  2. PLAVIX [Concomitant]
     Dosage: 20 DF, SINGLE
     Dates: start: 20120414, end: 20120415
  3. XANAX [Concomitant]
     Dosage: 0.5 MG, 1X/DAY
  4. ZOLPIDEM TARTRATE [Concomitant]
     Dosage: 14 DF, SINGLE
     Dates: start: 20120414, end: 20120415
  5. AMLODIPINE BESYLATE [Suspect]
     Dosage: 5 MG, 2X/DAY
  6. AMLODIPINE BESYLATE [Suspect]
     Dosage: 20 DF, SINGLE
     Route: 048
     Dates: start: 20120414, end: 20120415
  7. ATORVASTATIN [Concomitant]
     Dosage: 50 DF, SINGLE
     Dates: start: 20120414, end: 20120415
  8. IMOVANE [Concomitant]
     Dosage: 1 DF, 1X/DAY
  9. ATORVASTATIN [Concomitant]
     Dosage: 40 MG, 1X/DAY
  10. TANGANIL [Concomitant]
     Dosage: 2 DF, 2X/DAY
  11. IRBESARTAN [Suspect]
     Dosage: 56 DF, SINGLE
     Route: 048
     Dates: start: 20120414, end: 20120415
  12. PLAVIX [Concomitant]
     Dosage: 1 DF, 1X/DAY
  13. LEVOTHYROXINE SODIUM [Concomitant]
     Dosage: 75 UG, 1X/DAY
  14. IRBESARTAN [Suspect]
     Dosage: 300 MG, 1X/DAY
     Route: 048

REACTIONS (3)
  - HYPOTENSION [None]
  - RENAL FAILURE ACUTE [None]
  - POISONING DELIBERATE [None]
